FAERS Safety Report 12326811 (Version 2)
Quarter: 2016Q3

REPORT INFORMATION
  Report Type: Spontaneous
  Country: US (occurrence: US)
  Receive Date: 20160503
  Receipt Date: 20160728
  Transmission Date: 20161109
  Serious: No
  Sender: FDA-Public Use
  Company Number: US-PFIZER INC-2016206790

PATIENT

DRUGS (1)
  1. ADVIL [Suspect]
     Active Substance: IBUPROFEN
     Dosage: UNK

REACTIONS (4)
  - Poor quality drug administered [Recovered/Resolved]
  - Product taste abnormal [Recovered/Resolved]
  - Product physical issue [Recovered/Resolved]
  - Dysgeusia [Recovered/Resolved]
